FAERS Safety Report 22806592 (Version 7)
Quarter: 2025Q2

REPORT INFORMATION
  Report Type: Report from Study
  Country: CA (occurrence: CA)
  Receive Date: 20230810
  Receipt Date: 20250619
  Transmission Date: 20250717
  Serious: Yes (Other)
  Sender: TAKEDA
  Company Number: CA-TAKEDA-2023TUS066141

PATIENT
  Age: 50 Year
  Sex: Male

DRUGS (15)
  1. VEDOLIZUMAB [Suspect]
     Active Substance: VEDOLIZUMAB
     Indication: Colitis ulcerative
  2. VEDOLIZUMAB [Suspect]
     Active Substance: VEDOLIZUMAB
  3. VEDOLIZUMAB [Suspect]
     Active Substance: VEDOLIZUMAB
  4. VEDOLIZUMAB [Suspect]
     Active Substance: VEDOLIZUMAB
     Dosage: 300 MILLIGRAM, Q4WEEKS
     Dates: start: 20250311
  5. VEDOLIZUMAB [Suspect]
     Active Substance: VEDOLIZUMAB
     Dosage: 300 MILLIGRAM, Q4WEEKS
  6. URSODIOL [Concomitant]
     Active Substance: URSODIOL
  7. PANTOPRAZOLE [Concomitant]
     Active Substance: PANTOPRAZOLE
  8. HYDROMORPHONE [Concomitant]
     Active Substance: HYDROMORPHONE
  9. SODIUM [Concomitant]
     Active Substance: SODIUM
  10. LOMOTIL [Concomitant]
     Active Substance: ATROPINE SULFATE\DIPHENOXYLATE HYDROCHLORIDE
  11. VITAMIN C [Concomitant]
     Active Substance: ASCORBIC ACID
  12. VITAMIN D [Concomitant]
     Active Substance: VITAMIN D NOS
  13. METAMUCIL [Concomitant]
     Active Substance: PLANTAGO SEED
  14. IRON [Concomitant]
     Active Substance: IRON
  15. ENOXAPARIN [Concomitant]
     Active Substance: ENOXAPARIN

REACTIONS (12)
  - Biliary obstruction [Unknown]
  - Frequent bowel movements [Not Recovered/Not Resolved]
  - Middle insomnia [Unknown]
  - Drug level decreased [Recovered/Resolved]
  - Drug ineffective [Unknown]
  - Irritable bowel syndrome [Unknown]
  - Diarrhoea [Unknown]
  - Xanthelasma [Unknown]
  - Hypercholesterolaemia [Unknown]
  - Pouchitis [Unknown]
  - Helicobacter infection [Unknown]
  - Off label use [Unknown]

NARRATIVE: CASE EVENT DATE: 20250124
